FAERS Safety Report 7438374-X (Version None)
Quarter: 2011Q2

REPORT INFORMATION
  Report Type: 
  Country: None (occurrence: None)
  Receive Date: 20110426
  Receipt Date: 20110329
  Transmission Date: 20111010
  Serious: Yes (Hospitalization, Disabling, Other)
  Sender: FDA-Public Use
  Company Number: US-BAYER-200942221NA

PATIENT
  Age: 40 Year
  Sex: Female
  Weight: 113.64 kg

DRUGS (7)
  1. CELEBREX [Concomitant]
     Route: 048
  2. OCELLA [Suspect]
     Indication: MENSTRUATION IRREGULAR
     Route: 048
     Dates: start: 20080925, end: 20081023
  3. ZOLOFT [Concomitant]
     Indication: DEEP VEIN THROMBOSIS
     Route: 048
     Dates: start: 20090101
  4. YASMIN [Suspect]
     Indication: MENSTRUATION IRREGULAR
  5. OCELLA [Suspect]
     Indication: CONTRACEPTION
  6. IBUPROFEN [Concomitant]
     Route: 048
  7. YASMIN [Suspect]
     Indication: CONTRACEPTION
     Route: 048
     Dates: start: 20070612, end: 20080925

REACTIONS (6)
  - PULMONARY EMBOLISM [None]
  - PAIN IN EXTREMITY [None]
  - DEEP VEIN THROMBOSIS [None]
  - JOINT SWELLING [None]
  - OEDEMA PERIPHERAL [None]
  - ARTHRALGIA [None]
